FAERS Safety Report 24599325 (Version 3)
Quarter: 2025Q2

REPORT INFORMATION
  Report Type: Spontaneous
  Country: US (occurrence: US)
  Receive Date: 20241110
  Receipt Date: 20250526
  Transmission Date: 20250717
  Serious: No
  Sender: SANOFI AVENTIS
  Company Number: US-SA-2024SA318617

PATIENT
  Sex: Female

DRUGS (27)
  1. DUPIXENT [Suspect]
     Active Substance: DUPILUMAB
     Indication: Dermatitis atopic
     Dosage: 300 MG, QW
     Route: 058
     Dates: start: 2022
  2. RESTASIS [Concomitant]
     Active Substance: CYCLOSPORINE
  3. ROSUVASTATIN [Concomitant]
     Active Substance: ROSUVASTATIN
  4. MONTELUKAST [Concomitant]
     Active Substance: MONTELUKAST
  5. MIRTAZAPINE [Concomitant]
     Active Substance: MIRTAZAPINE
  6. MUPIROCIN [Concomitant]
     Active Substance: MUPIROCIN
  7. MOUNJARO [Concomitant]
     Active Substance: TIRZEPATIDE
  8. JARDIANCE [Concomitant]
     Active Substance: EMPAGLIFLOZIN
  9. BETAMETHASONE [Concomitant]
     Active Substance: BETAMETHASONE
  10. ACARBOSE [Concomitant]
     Active Substance: ACARBOSE
  11. BISACODYL [Concomitant]
     Active Substance: BISACODYL
  12. CYCLOBENZAPRINE [Concomitant]
     Active Substance: CYCLOBENZAPRINE
  13. DOXEPIN [Concomitant]
     Active Substance: DOXEPIN
  14. DULOXETINE [Concomitant]
     Active Substance: DULOXETINE
  15. FAMOTIDINE [Concomitant]
     Active Substance: FAMOTIDINE
  16. GABAPENTIN [Concomitant]
     Active Substance: GABAPENTIN
  17. GLIPIZIDE [Concomitant]
     Active Substance: GLIPIZIDE
  18. HYDROXYZINE [Concomitant]
     Active Substance: HYDROXYZINE HYDROCHLORIDE
  19. LORATADINE [Concomitant]
     Active Substance: LORATADINE
  20. MAGNESIUM [Concomitant]
     Active Substance: MAGNESIUM
  21. MELOXICAM [Concomitant]
     Active Substance: MELOXICAM
  22. NABUMETONE [Concomitant]
     Active Substance: NABUMETONE
  23. PREGABALIN [Concomitant]
     Active Substance: PREGABALIN
  24. THEOPHYLLINE [Concomitant]
     Active Substance: THEOPHYLLINE
  25. VITAMIN D3 [Concomitant]
     Active Substance: CHOLECALCIFEROL
  26. CYCLOSPORINE [Concomitant]
     Active Substance: CYCLOSPORINE
  27. BREZTRI AEROSPHERE [BUDESONIDE;FORMOTEROL FUMARATE DIHYDRATE;GLYCOPYRR [Concomitant]

REACTIONS (17)
  - Asthenia [Not Recovered/Not Resolved]
  - Dry skin [Not Recovered/Not Resolved]
  - Fibromyalgia [Not Recovered/Not Resolved]
  - Depression [Not Recovered/Not Resolved]
  - Sleep disorder due to a general medical condition [Not Recovered/Not Resolved]
  - Skin haemorrhage [Not Recovered/Not Resolved]
  - Skin fissures [Not Recovered/Not Resolved]
  - Pain [Not Recovered/Not Resolved]
  - Feeling hot [Not Recovered/Not Resolved]
  - Blister [Not Recovered/Not Resolved]
  - Skin weeping [Not Recovered/Not Resolved]
  - Weight increased [Not Recovered/Not Resolved]
  - Pruritus [Not Recovered/Not Resolved]
  - Skin exfoliation [Not Recovered/Not Resolved]
  - Eye irritation [Unknown]
  - Drug ineffective [Unknown]
  - Inappropriate schedule of product administration [Unknown]

NARRATIVE: CASE EVENT DATE: 20220101
